FAERS Safety Report 6169351-7 (Version None)
Quarter: 2009Q2

REPORT INFORMATION
  Report Type: 
  Country: None (occurrence: None)
  Receive Date: 20090428
  Receipt Date: 20090415
  Transmission Date: 20091009
  Serious: Yes (Other)
  Sender: FDA-Public Use
  Company Number: GB-RANBAXY-2009RR-23556

PATIENT
  Age: 66 Year
  Sex: Male

DRUGS (7)
  1. AMIODARONE [Suspect]
     Indication: VENTRICULAR TACHYCARDIA
     Route: 048
  2. AMIODARONE [Suspect]
     Dosage: 400 MG, QD
     Route: 048
  3. AMIODARONE [Suspect]
     Route: 042
  4. BISOPROLOL FUMARATE [Suspect]
     Indication: VENTRICULAR TACHYCARDIA
     Route: 065
  5. MAGNESIUM SULFATE [Suspect]
     Indication: VENTRICULAR TACHYCARDIA
     Route: 042
  6. MEXITIL [Suspect]
     Indication: VENTRICULAR TACHYCARDIA
     Route: 065
  7. RAMIPRIL [Suspect]
     Indication: VENTRICULAR TACHYCARDIA
     Route: 065

REACTIONS (2)
  - DRUG INEFFECTIVE [None]
  - VENTRICULAR TACHYCARDIA [None]
